FAERS Safety Report 6032144-5 (Version None)
Quarter: 2009Q1

REPORT INFORMATION
  Report Type: 
  Country: None (occurrence: None)
  Receive Date: 20090107
  Receipt Date: 20081218
  Transmission Date: 20090719
  Serious: Yes (Life-Threatening)
  Sender: FDA-Public Use
  Company Number: 200813151BYL

PATIENT
  Age: 62 Year
  Sex: Male

DRUGS (26)
  1. FLUDARA [Suspect]
     Indication: FOLLICLE CENTRE LYMPHOMA, FOLLICULAR GRADE I, II, III STAGE IV
     Dosage: 40 MG ORAL
     Route: 048
     Dates: start: 20081111, end: 20081113
  2. NOVANTRONE [Concomitant]
  3. DECADRON [Concomitant]
  4. METHOTREXATE [Concomitant]
  5. PREDONINE (PREDNISOLONE [PREDNISOLONE]) [Concomitant]
  6. CYTARABINE [Concomitant]
  7. POLYGLOBIN (IMMUNOGLOBULIN [IMMUNOGLOBULIN]) [Concomitant]
  8. ELCITONIN (ELCATONIN) [Concomitant]
  9. DIFLUCAN [Concomitant]
  10. COTRIM [Concomitant]
  11. LANSOPRAZOLE [Concomitant]
  12. MUCOSTA (REBAMIPIDE) [Concomitant]
  13. OXYCONTIN [Concomitant]
  14. DUROTEP (FENTANYL) [Concomitant]
  15. NOVAMIN (PROCHLORPERAZINE) [Concomitant]
  16. CYCLOPHOSPHAMIDE [Concomitant]
  17. DOXORUBICIN HYDROCHLORIDE (DOXORUBICIN HYDROCHLORIDE) [Concomitant]
  18. VINCRISTINE SULFATE [Concomitant]
  19. PREDNISOLONE [Concomitant]
  20. RITUXIMAB (RITUXIMAB) [Concomitant]
  21. DEXAMETHASONE SODIUM PHOSPHATE [Concomitant]
  22. ETOPOSIDE [Concomitant]
  23. IFOSFAMIDE [Concomitant]
  24. CARBOPLATIN [Concomitant]
  25. METHOTREXATE [Concomitant]
  26. BLEOMYCIN HYDROCHLORIDE (BLEOMYCIN HYDROCHLORIDE) [Concomitant]

REACTIONS (1)
  - LOSS OF CONSCIOUSNESS [None]
